FAERS Safety Report 4307874-3 (Version None)
Quarter: 2004Q1

REPORT INFORMATION
  Report Type: 
  Country: None (occurrence: None)
  Receive Date: 20040226
  Receipt Date: 20030415
  Transmission Date: 20041129
  Serious: Yes (Life-Threatening, Hospitalization)
  Sender: FDA-Public Use
  Company Number: 2002139624US

PATIENT
  Age: 72 Year
  Sex: Female
  Weight: 53.5 kg

DRUGS (5)
  1. CELEBREX [Suspect]
     Indication: ARTHRALGIA
     Dosage: UNK, QD; ORAL
     Route: 048
     Dates: start: 20020730, end: 20020731
  2. COUMADIN [Concomitant]
  3. LIPITOR [Concomitant]
  4. DEMADEX [Concomitant]
  5. POTASSIUM [Concomitant]

REACTIONS (7)
  - AMNESIA [None]
  - BURNING SENSATION [None]
  - CEREBROVASCULAR ACCIDENT [None]
  - DISORIENTATION [None]
  - DYSARTHRIA [None]
  - HEADACHE [None]
  - INSOMNIA [None]
